FAERS Safety Report 9502983 (Version 1)
Quarter: 2013Q3

REPORT INFORMATION
  Report Type: Spontaneous
  Country: US (occurrence: US)
  Receive Date: 20130906
  Receipt Date: 20130906
  Transmission Date: 20140515
  Serious: Yes (Other)
  Sender: FDA-Public Use
  Company Number: US-AMGEN-USASP2013061817

PATIENT
  Age: 62 Year
  Sex: Female

DRUGS (1)
  1. ENBREL [Suspect]
     Indication: POLYMYALGIA RHEUMATICA
     Dosage: 50 MG, QWK
     Route: 065
     Dates: start: 20130814

REACTIONS (3)
  - Diverticulitis [Not Recovered/Not Resolved]
  - Myalgia [Not Recovered/Not Resolved]
  - Sensory disturbance [Not Recovered/Not Resolved]
